FAERS Safety Report 7562462-0 (Version None)
Quarter: 2011Q2

REPORT INFORMATION
  Report Type: 
  Country: None (occurrence: None)
  Receive Date: 20110614
  Receipt Date: 20110608
  Transmission Date: 20111010
  Serious: Yes (Death)
  Sender: FDA-Public Use
  Company Number: 2011001164

PATIENT
  Age: 66 Year
  Sex: Female

DRUGS (2)
  1. TARCEVA [Suspect]
  2. TARCEVA [Suspect]
     Indication: LUNG NEOPLASM MALIGNANT
     Dosage: 150 MG, UID/QD, ORAL; UID/QD, ORAL
     Route: 048
     Dates: start: 20110222

REACTIONS (3)
  - VOMITING [None]
  - DIARRHOEA [None]
  - URINARY TRACT INFECTION [None]
